FAERS Safety Report 21540241 (Version 1)
Quarter: 2022Q4

REPORT INFORMATION
  Report Type: Spontaneous
  Country: CA (occurrence: None)
  Receive Date: 20221102
  Receipt Date: 20221102
  Transmission Date: 20230113
  Serious: Yes (Death, Hospitalization)
  Sender: FDA-Public Use
  Company Number: CA-ROCHE-3205467

PATIENT
  Sex: Female

DRUGS (177)
  1. ACTEMRA [Suspect]
     Active Substance: TOCILIZUMAB
     Indication: Rheumatoid arthritis
     Route: 058
  2. ACTEMRA [Suspect]
     Active Substance: TOCILIZUMAB
     Route: 058
  3. ACTEMRA [Suspect]
     Active Substance: TOCILIZUMAB
     Route: 058
  4. ACTEMRA [Suspect]
     Active Substance: TOCILIZUMAB
     Route: 058
  5. RITUXIMAB [Suspect]
     Active Substance: RITUXIMAB
     Indication: Product used for unknown indication
     Route: 065
  6. TOCILIZUMAB [Suspect]
     Active Substance: TOCILIZUMAB
     Indication: Rheumatoid arthritis
     Route: 016
  7. TOCILIZUMAB [Suspect]
     Active Substance: TOCILIZUMAB
     Route: 058
  8. TOCILIZUMAB [Suspect]
     Active Substance: TOCILIZUMAB
     Route: 016
  9. COSENTYX [Suspect]
     Active Substance: SECUKINUMAB
     Indication: Rheumatoid arthritis
     Route: 065
  10. COSENTYX [Suspect]
     Active Substance: SECUKINUMAB
     Route: 065
  11. PREDNISONE [Suspect]
     Active Substance: PREDNISONE
     Indication: Product used for unknown indication
     Route: 048
  12. RITUXIMAB [Suspect]
     Active Substance: RITUXIMAB
     Route: 048
  13. PREDNISONE [Suspect]
     Active Substance: PREDNISONE
     Route: 048
  14. RITUXIMAB [Suspect]
     Active Substance: RITUXIMAB
     Route: 048
  15. ACETAMINOPHEN [Suspect]
     Active Substance: ACETAMINOPHEN
     Indication: Product used for unknown indication
     Route: 065
  16. ACETAMINOPHEN\CYANOCOBALAMIN\THIAMINE\TRAMADOL HYDROCHLORIDE [Suspect]
     Active Substance: ACETAMINOPHEN\CYANOCOBALAMIN\THIAMINE\TRAMADOL HYDROCHLORIDE
     Indication: Product used for unknown indication
     Route: 065
  17. ALENDRONATE SODIUM [Suspect]
     Active Substance: ALENDRONATE SODIUM
     Indication: Rheumatoid arthritis
     Route: 065
  18. ALENDRONATE SODIUM [Suspect]
     Active Substance: ALENDRONATE SODIUM
     Route: 065
  19. ALENDRONATE SODIUM [Suspect]
     Active Substance: ALENDRONATE SODIUM
     Route: 065
  20. ALENDRONATE SODIUM [Suspect]
     Active Substance: ALENDRONATE SODIUM
     Route: 065
  21. ALENDRONATE SODIUM [Suspect]
     Active Substance: ALENDRONATE SODIUM
     Route: 065
  22. ALENDRONATE SODIUM [Suspect]
     Active Substance: ALENDRONATE SODIUM
     Route: 065
  23. ALENDRONIC ACID\CALCIUM CITRATE\CHOLECALCIFEROL [Suspect]
     Active Substance: ALENDRONIC ACID\CALCIUM CITRATE\CHOLECALCIFEROL
     Indication: Product used for unknown indication
     Route: 065
  24. ALENDRONIC ACID\CALCIUM CITRATE\CHOLECALCIFEROL [Suspect]
     Active Substance: ALENDRONIC ACID\CALCIUM CITRATE\CHOLECALCIFEROL
     Route: 065
  25. AMMONIUM CHLORIDE\DIPHENHYDRAMINE HYDROCHLORIDE\MENTHOL\SODIUM CITRATE [Suspect]
     Active Substance: AMMONIUM CHLORIDE\DIPHENHYDRAMINE HYDROCHLORIDE\MENTHOL\SODIUM CITRATE
     Indication: Product used for unknown indication
     Route: 065
  26. PREDNISONE [Suspect]
     Active Substance: PREDNISONE
     Indication: Product used for unknown indication
     Route: 065
  27. PREDNISONE [Suspect]
     Active Substance: PREDNISONE
     Route: 048
  28. ARAVA [Suspect]
     Active Substance: LEFLUNOMIDE
     Indication: Product used for unknown indication
     Route: 048
  29. ARAVA [Suspect]
     Active Substance: LEFLUNOMIDE
     Route: 048
  30. ARAVA [Suspect]
     Active Substance: LEFLUNOMIDE
     Route: 048
  31. ASACOL [Suspect]
     Active Substance: MESALAMINE
     Indication: Crohn^s disease
     Route: 065
  32. AZATHIOPRINE SODIUM [Suspect]
     Active Substance: AZATHIOPRINE SODIUM
     Indication: Rheumatoid arthritis
     Route: 065
  33. DIETARY SUPPLEMENT [Suspect]
     Active Substance: DIETARY SUPPLEMENT
     Indication: Rheumatoid arthritis
     Route: 065
  34. BUPIVACAINE HYDROCHLORIDE [Suspect]
     Active Substance: BUPIVACAINE HYDROCHLORIDE
     Indication: Rheumatoid arthritis
     Route: 065
  35. CALCIUM [Suspect]
     Active Substance: CALCIUM
     Indication: Product used for unknown indication
     Route: 065
  36. CALCIUM SALICYLATE [Suspect]
     Active Substance: CALCIUM SALICYLATE
     Indication: Product used for unknown indication
     Route: 065
  37. CALCIUM CARBONATE [Suspect]
     Active Substance: CALCIUM CARBONATE
     Indication: Product used for unknown indication
     Route: 065
  38. MINERALS\VITAMINS [Suspect]
     Active Substance: MINERALS\VITAMINS
     Indication: Rheumatoid arthritis
     Route: 065
  39. MINERALS\VITAMINS [Suspect]
     Active Substance: MINERALS\VITAMINS
     Route: 065
  40. CETIRIZINE HYDROCHLORIDE [Suspect]
     Active Substance: CETIRIZINE HYDROCHLORIDE
     Indication: Product used for unknown indication
     Route: 065
  41. CETIRIZINE HYDROCHLORIDE [Suspect]
     Active Substance: CETIRIZINE HYDROCHLORIDE
     Route: 065
  42. CETIRIZINE HYDROCHLORIDE [Suspect]
     Active Substance: CETIRIZINE HYDROCHLORIDE
     Route: 065
  43. CETIRIZINE HYDROCHLORIDE [Suspect]
     Active Substance: CETIRIZINE HYDROCHLORIDE
     Route: 065
  44. CETIRIZINE HYDROCHLORIDE [Suspect]
     Active Substance: CETIRIZINE HYDROCHLORIDE
     Route: 065
  45. CETIRIZINE HYDROCHLORIDE [Suspect]
     Active Substance: CETIRIZINE HYDROCHLORIDE
     Route: 065
  46. CETIRIZINE HYDROCHLORIDE [Suspect]
     Active Substance: CETIRIZINE HYDROCHLORIDE
     Route: 065
  47. CETIRIZINE HYDROCHLORIDE [Suspect]
     Active Substance: CETIRIZINE HYDROCHLORIDE
     Route: 065
  48. CIMZIA [Suspect]
     Active Substance: CERTOLIZUMAB PEGOL
     Indication: Rheumatoid arthritis
     Route: 058
  49. CIMZIA [Suspect]
     Active Substance: CERTOLIZUMAB PEGOL
     Route: 058
  50. CIMZIA [Suspect]
     Active Substance: CERTOLIZUMAB PEGOL
     Route: 058
  51. DESOXIMETASONE\FRAMYCETIN SULFATE\GRAMICIDIN [Suspect]
     Active Substance: DESOXIMETASONE\FRAMYCETIN SULFATE\GRAMICIDIN
     Indication: Rheumatoid arthritis
     Route: 061
  52. DESOXIMETASONE\FRAMYCETIN SULFATE\GRAMICIDIN [Suspect]
     Active Substance: DESOXIMETASONE\FRAMYCETIN SULFATE\GRAMICIDIN
     Route: 061
  53. DESOXIMETASONE\FRAMYCETIN SULFATE\GRAMICIDIN [Suspect]
     Active Substance: DESOXIMETASONE\FRAMYCETIN SULFATE\GRAMICIDIN
     Route: 061
  54. DESOXIMETASONE\FRAMYCETIN SULFATE\GRAMICIDIN [Suspect]
     Active Substance: DESOXIMETASONE\FRAMYCETIN SULFATE\GRAMICIDIN
     Route: 061
  55. DICLOFENAC [Suspect]
     Active Substance: DICLOFENAC
     Indication: Product used for unknown indication
     Route: 065
  56. DICLOFENAC [Suspect]
     Active Substance: DICLOFENAC
     Route: 065
  57. DICLOFENAC [Suspect]
     Active Substance: DICLOFENAC
     Route: 065
  58. DICLOFENAC [Suspect]
     Active Substance: DICLOFENAC
     Route: 065
  59. DICLOFENAC [Suspect]
     Active Substance: DICLOFENAC
     Route: 065
  60. DICLOFENAC POTASSIUM [Suspect]
     Active Substance: DICLOFENAC POTASSIUM
     Indication: Product used for unknown indication
     Route: 065
  61. DICLOFENAC SODIUM [Suspect]
     Active Substance: DICLOFENAC SODIUM
     Indication: Product used for unknown indication
     Route: 065
  62. DIPHENHYDRAMINE [Suspect]
     Active Substance: DIPHENHYDRAMINE
     Indication: Product used for unknown indication
     Route: 065
  63. ENBREL [Suspect]
     Active Substance: ETANERCEPT
     Indication: Rheumatoid arthritis
     Route: 058
  64. ENBREL [Suspect]
     Active Substance: ETANERCEPT
     Route: 058
  65. ENBREL [Suspect]
     Active Substance: ETANERCEPT
     Route: 058
  66. ERELZI [Suspect]
     Active Substance: ETANERCEPT-SZZS
     Indication: Rheumatoid arthritis
     Route: 066
  67. ERELZI [Suspect]
     Active Substance: ETANERCEPT-SZZS
     Indication: Rheumatoid arthritis
     Route: 065
  68. ERELZI [Suspect]
     Active Substance: ETANERCEPT-SZZS
     Route: 065
  69. ERELZI [Suspect]
     Active Substance: ETANERCEPT-SZZS
     Route: 065
  70. FLUMETHASONE\SALICYLIC ACID [Suspect]
     Active Substance: FLUMETHASONE\SALICYLIC ACID
     Indication: Product used for unknown indication
     Route: 065
  71. FLUMETHASONE\SALICYLIC ACID [Suspect]
     Active Substance: FLUMETHASONE\SALICYLIC ACID
     Route: 003
  72. FOLIC ACID [Suspect]
     Active Substance: FOLIC ACID
     Indication: Rheumatoid arthritis
     Route: 065
  73. FOLIC ACID [Suspect]
     Active Substance: FOLIC ACID
     Route: 065
  74. FOLIC ACID [Suspect]
     Active Substance: FOLIC ACID
     Route: 065
  75. FOLIC ACID [Suspect]
     Active Substance: FOLIC ACID
     Route: 065
  76. FOLIC ACID [Suspect]
     Active Substance: FOLIC ACID
     Route: 065
  77. FOLIC ACID [Suspect]
     Active Substance: FOLIC ACID
     Route: 065
  78. FOLIC ACID [Suspect]
     Active Substance: FOLIC ACID
     Route: 065
  79. FOLIC ACID [Suspect]
     Active Substance: FOLIC ACID
     Route: 065
  80. FOLIC ACID [Suspect]
     Active Substance: FOLIC ACID
     Route: 065
  81. FOLIC ACID [Suspect]
     Active Substance: FOLIC ACID
     Route: 065
  82. FOLIC ACID [Suspect]
     Active Substance: FOLIC ACID
     Route: 065
  83. FOLIC ACID [Suspect]
     Active Substance: FOLIC ACID
     Route: 065
  84. FOSAMAX [Suspect]
     Active Substance: ALENDRONATE SODIUM
     Indication: Rheumatoid arthritis
     Route: 016
  85. HUMIRA [Suspect]
     Active Substance: ADALIMUMAB
     Indication: Rheumatoid arthritis
     Route: 058
  86. HUMIRA [Suspect]
     Active Substance: ADALIMUMAB
     Route: 058
  87. HUMIRA [Suspect]
     Active Substance: ADALIMUMAB
     Route: 065
  88. HYDROCORTISONE ACETATE [Suspect]
     Active Substance: HYDROCORTISONE ACETATE
     Indication: Rheumatoid arthritis
     Route: 048
  89. HYDROCORTISONE ACETATE [Suspect]
     Active Substance: HYDROCORTISONE ACETATE
     Route: 048
  90. HYDROCORTISONE ACETATE [Suspect]
     Active Substance: HYDROCORTISONE ACETATE
     Route: 048
  91. HYDROXYCHLOROQUINE [Suspect]
     Active Substance: HYDROXYCHLOROQUINE
     Indication: Product used for unknown indication
     Route: 048
  92. HYDROXYCHLOROQUINE [Suspect]
     Active Substance: HYDROXYCHLOROQUINE
     Route: 048
  93. HYDROXYCHLOROQUINE SULFATE [Suspect]
     Active Substance: HYDROXYCHLOROQUINE SULFATE
     Indication: Rheumatoid arthritis
     Route: 065
  94. HYDROXYCHLOROQUINE SULFATE [Suspect]
     Active Substance: HYDROXYCHLOROQUINE SULFATE
     Route: 065
  95. HYDROXYCHLOROQUINE SULFATE [Suspect]
     Active Substance: HYDROXYCHLOROQUINE SULFATE
     Route: 065
  96. HYDROXYCHLOROQUINE SULFATE [Suspect]
     Active Substance: HYDROXYCHLOROQUINE SULFATE
     Route: 065
  97. HYDROXYCHLOROQUINE SULFATE [Suspect]
     Active Substance: HYDROXYCHLOROQUINE SULFATE
     Route: 065
  98. INFLIXIMAB [Suspect]
     Active Substance: INFLIXIMAB
     Indication: Product used for unknown indication
     Route: 042
  99. INFLIXIMAB [Suspect]
     Active Substance: INFLIXIMAB
     Route: 042
  100. KEVZARA [Suspect]
     Active Substance: SARILUMAB
     Indication: Rheumatoid arthritis
     Route: 065
  101. METHOTREXATE [Suspect]
     Active Substance: METHOTREXATE
     Indication: Product used for unknown indication
     Route: 065
  102. METHOTREXATE [Suspect]
     Active Substance: METHOTREXATE
     Route: 065
  103. METHOTREXATE [Suspect]
     Active Substance: METHOTREXATE
     Route: 065
  104. METHOTREXATE [Suspect]
     Active Substance: METHOTREXATE
     Route: 065
  105. METHOTREXATE [Suspect]
     Active Substance: METHOTREXATE
     Route: 058
  106. METHOTREXATE [Suspect]
     Active Substance: METHOTREXATE
     Route: 048
  107. METHOTREXATE [Suspect]
     Active Substance: METHOTREXATE
     Route: 048
  108. METHOTREXATE [Suspect]
     Active Substance: METHOTREXATE
     Route: 048
  109. METHOTREXATE [Suspect]
     Active Substance: METHOTREXATE
     Route: 048
  110. METHOTREXATE [Suspect]
     Active Substance: METHOTREXATE
     Route: 048
  111. METHOTREXATE [Suspect]
     Active Substance: METHOTREXATE
     Route: 048
  112. METHOTREXATE [Suspect]
     Active Substance: METHOTREXATE
     Route: 048
  113. METHOTREXATE [Suspect]
     Active Substance: METHOTREXATE
     Route: 016
  114. MINOCYCLINE HYDROCHLORIDE [Suspect]
     Active Substance: MINOCYCLINE HYDROCHLORIDE
     Indication: Rheumatoid arthritis
     Route: 065
  115. MINOCYCLINE HYDROCHLORIDE [Suspect]
     Active Substance: MINOCYCLINE HYDROCHLORIDE
     Route: 065
  116. MINOCYCLINE HYDROCHLORIDE [Suspect]
     Active Substance: MINOCYCLINE HYDROCHLORIDE
     Route: 065
  117. ORENCIA [Suspect]
     Active Substance: ABATACEPT
     Indication: Rheumatoid arthritis
     Route: 065
  118. ORENCIA [Suspect]
     Active Substance: ABATACEPT
     Route: 065
  119. PANTOPRAZOLE [Suspect]
     Active Substance: PANTOPRAZOLE
     Indication: Dyspepsia
     Route: 065
  120. PHTHALYLSULFATHIAZOLE [Suspect]
     Active Substance: PHTHALYLSULFATHIAZOLE
     Indication: Rheumatoid arthritis
     Route: 065
  121. PHTHALYLSULFATHIAZOLE [Suspect]
     Active Substance: PHTHALYLSULFATHIAZOLE
     Route: 065
  122. PHTHALYLSULFATHIAZOLE [Suspect]
     Active Substance: PHTHALYLSULFATHIAZOLE
     Route: 065
  123. PHTHALYLSULFATHIAZOLE [Suspect]
     Active Substance: PHTHALYLSULFATHIAZOLE
     Route: 065
  124. PLAQUENIL [Suspect]
     Active Substance: HYDROXYCHLOROQUINE SULFATE
     Indication: Rheumatoid arthritis
     Route: 065
  125. PLAQUENIL [Suspect]
     Active Substance: HYDROXYCHLOROQUINE SULFATE
     Route: 065
  126. REMICADE [Suspect]
     Active Substance: INFLIXIMAB
     Indication: Rheumatoid arthritis
     Route: 042
  127. REMICADE [Suspect]
     Active Substance: INFLIXIMAB
     Route: 042
  128. REMICADE [Suspect]
     Active Substance: INFLIXIMAB
     Route: 042
  129. REMICADE [Suspect]
     Active Substance: INFLIXIMAB
     Route: 042
  130. REMICADE [Suspect]
     Active Substance: INFLIXIMAB
     Route: 042
  131. SIMPONI [Suspect]
     Active Substance: GOLIMUMAB
     Indication: Rheumatoid arthritis
     Route: 065
  132. SIMPONI [Suspect]
     Active Substance: GOLIMUMAB
     Route: 065
  133. SOLU-MEDROL [Suspect]
     Active Substance: METHYLPREDNISOLONE SODIUM SUCCINATE
     Indication: Product used for unknown indication
     Route: 048
  134. STELARA [Suspect]
     Active Substance: USTEKINUMAB
     Indication: Rheumatoid arthritis
     Route: 065
  135. STELARA [Suspect]
     Active Substance: USTEKINUMAB
     Route: 065
  136. STELARA [Suspect]
     Active Substance: USTEKINUMAB
     Route: 065
  137. SULFASALAZINE [Suspect]
     Active Substance: SULFASALAZINE
     Indication: Product used for unknown indication
     Route: 058
  138. SULFASALAZINE [Suspect]
     Active Substance: SULFASALAZINE
     Route: 058
  139. SULFASALAZINE [Suspect]
     Active Substance: SULFASALAZINE
     Route: 058
  140. SULFASALAZINE [Suspect]
     Active Substance: SULFASALAZINE
     Route: 058
  141. SULFASALAZINE [Suspect]
     Active Substance: SULFASALAZINE
     Route: 058
  142. SULFASALAZINE [Suspect]
     Active Substance: SULFASALAZINE
     Route: 058
  143. SULFASALAZINE [Suspect]
     Active Substance: SULFASALAZINE
     Route: 058
  144. SULFASALAZINE [Suspect]
     Active Substance: SULFASALAZINE
     Route: 058
  145. SULFASALAZINE [Suspect]
     Active Substance: SULFASALAZINE
     Route: 058
  146. SULFASALAZINE [Suspect]
     Active Substance: SULFASALAZINE
     Route: 058
  147. USTEKINUMAB [Suspect]
     Active Substance: USTEKINUMAB
     Indication: Rheumatoid arthritis
     Route: 058
  148. USTEKINUMAB [Suspect]
     Active Substance: USTEKINUMAB
     Route: 058
  149. USTEKINUMAB [Suspect]
     Active Substance: USTEKINUMAB
     Route: 058
  150. XELJANZ [Suspect]
     Active Substance: TOFACITINIB CITRATE
     Indication: Rheumatoid arthritis
     Route: 065
  151. XELJANZ [Suspect]
     Active Substance: TOFACITINIB CITRATE
     Route: 065
  152. CHLORHEXIDINE [Suspect]
     Active Substance: CHLORHEXIDINE
     Indication: Product used for unknown indication
     Route: 065
  153. CHLORHEXIDINE [Suspect]
     Active Substance: CHLORHEXIDINE
     Route: 065
  154. CHLORHEXIDINE [Suspect]
     Active Substance: CHLORHEXIDINE
     Route: 065
  155. CHLORHEXIDINE [Suspect]
     Active Substance: CHLORHEXIDINE
     Route: 065
  156. CORTISONE ACETATE [Suspect]
     Active Substance: CORTISONE ACETATE
     Indication: Rheumatoid arthritis
     Route: 065
  157. CORTISONE ACETATE [Suspect]
     Active Substance: CORTISONE ACETATE
     Route: 065
  158. CORTISONE ACETATE [Suspect]
     Active Substance: CORTISONE ACETATE
     Route: 065
  159. CORTISONE ACETATE [Suspect]
     Active Substance: CORTISONE ACETATE
     Route: 065
  160. CORTISONE ACETATE [Suspect]
     Active Substance: CORTISONE ACETATE
     Route: 065
  161. HYDROCORTISONE [Suspect]
     Active Substance: HYDROCORTISONE
     Indication: Rheumatoid arthritis
     Route: 048
  162. HYDROCORTISONE [Suspect]
     Active Substance: HYDROCORTISONE
     Route: 048
  163. HYDROCORTISONE [Suspect]
     Active Substance: HYDROCORTISONE
     Route: 048
  164. HYDROCORTISONE [Suspect]
     Active Substance: HYDROCORTISONE
     Route: 048
  165. CODEINE [Concomitant]
     Active Substance: CODEINE
     Route: 065
  166. ACETAMINOPHEN;BUTALBITAL;CAFFEINE;CODEINE PHOSPHATE [Concomitant]
     Route: 065
  167. ACETAMINOPHEN;CHLORPHENAMINE MALEATE;DEXTROMETHORPHAN HYDROBROMIDE;PSE [Concomitant]
     Route: 065
  168. ATIVAN [Concomitant]
     Active Substance: LORAZEPAM
     Route: 065
  169. CAFFEINE [Concomitant]
     Active Substance: CAFFEINE
     Route: 065
  170. CHONDROITIN SULFATE;GLUCOSAMINE SULFATE;MANGANESE;VITAMIN C [Concomitant]
     Route: 065
  171. DESOGESTREL\ETHINYL ESTRADIOL [Concomitant]
     Active Substance: DESOGESTREL\ETHINYL ESTRADIOL
     Route: 065
  172. DOCONEXENT\ICOSAPENT [Concomitant]
     Active Substance: DOCONEXENT\ICOSAPENT
     Route: 065
  173. ERGOCALCIFEROL;LYSINE HYDROCHLORIDE;NICOTINAMIDE;PYRIDOXINE HYDROCHLOR [Concomitant]
     Route: 065
  174. LYSINE HYDROCHLORIDE;NICOTINAMIDE;PYRIDOXINE HYDROCHLORIDE;RIBOFLAVIN; [Concomitant]
     Route: 065
  175. ZESTRIL [Concomitant]
     Active Substance: LISINOPRIL
  176. CLONIDINE HYDROCHLORIDE [Suspect]
     Active Substance: CLONIDINE HYDROCHLORIDE
  177. MORPHINE SULFATE [Suspect]
     Active Substance: MORPHINE SULFATE

REACTIONS (27)
  - Abdominal discomfort [Fatal]
  - Alopecia [Fatal]
  - Arthralgia [Fatal]
  - Blood cholesterol increased [Fatal]
  - C-reactive protein increased [Fatal]
  - Condition aggravated [Fatal]
  - Decreased appetite [Fatal]
  - Dizziness [Fatal]
  - Fatigue [Fatal]
  - Fibromyalgia [Fatal]
  - General physical health deterioration [Fatal]
  - Headache [Fatal]
  - Helicobacter infection [Fatal]
  - Hepatic enzyme increased [Fatal]
  - Hypercholesterolaemia [Fatal]
  - Hypertension [Fatal]
  - Hypoaesthesia [Fatal]
  - Infusion related reaction [Fatal]
  - Mobility decreased [Fatal]
  - Osteoarthritis [Fatal]
  - Swelling [Fatal]
  - Type 2 diabetes mellitus [Fatal]
  - Vomiting [Fatal]
  - Drug intolerance [Fatal]
  - Drug ineffective [Fatal]
  - Intentional product use issue [Fatal]
  - Product use in unapproved indication [Fatal]
